FAERS Safety Report 16204575 (Version 2)
Quarter: 2019Q2

REPORT INFORMATION
  Report Type: Spontaneous
  Country: RU (occurrence: RU)
  Receive Date: 20190416
  Receipt Date: 20190416
  Transmission Date: 20190711
  Serious: Yes (Death, Hospitalization)
  Sender: FDA-Public Use
  Company Number: PHHY2019RU078605

PATIENT
  Age: 60 Year
  Sex: Female

DRUGS (1)
  1. PREDNISOLONE. [Suspect]
     Active Substance: PREDNISOLONE
     Indication: ADRENAL INSUFFICIENCY
     Dosage: 30 MG, QD
     Route: 065

REACTIONS (29)
  - Cardiac arrest [Fatal]
  - Nausea [Unknown]
  - Diarrhoea [Unknown]
  - Dyschezia [Unknown]
  - Haemorrhage [Fatal]
  - Fibrosis [Unknown]
  - Pneumonia [Unknown]
  - Chronic gastritis [Unknown]
  - Abdominal distension [Unknown]
  - Dry mouth [Unknown]
  - Loss of consciousness [Unknown]
  - Cyanosis [Unknown]
  - Duodenogastric reflux [Unknown]
  - Pancreatitis [Unknown]
  - Respiratory failure [Unknown]
  - Cholecystitis acute [Unknown]
  - Splenomegaly [Unknown]
  - Pallor [Unknown]
  - Dyspnoea [Unknown]
  - Hepatomegaly [Unknown]
  - Peritoneal adhesions [Unknown]
  - Intestinal obstruction [Unknown]
  - Intestinal tuberculosis [Unknown]
  - Cholecystitis chronic [Unknown]
  - Abdominal pain [Unknown]
  - Weight decreased [Unknown]
  - Sinus tachycardia [Unknown]
  - Peritonitis [Unknown]
  - Asthenia [Unknown]

NARRATIVE: CASE EVENT DATE: 20171020
